FAERS Safety Report 6210953-7 (Version None)
Quarter: 2009Q2

REPORT INFORMATION
  Report Type: 
  Country: None (occurrence: None)
  Receive Date: 20090528
  Receipt Date: 20090528
  Transmission Date: 20091009
  Serious: No
  Sender: FDA-Public Use
  Company Number: None

PATIENT
  Age: 46 Year
  Sex: Female
  Weight: 78.9259 kg

DRUGS (4)
  1. BUDEPRION XL 150MG TEVA [Suspect]
     Indication: DEPRESSION
     Dosage: 150MG ONE TIME A DAY PO
     Route: 048
  2. BUDEPRION XL 150MG TEVA [Suspect]
     Indication: FIBROMYALGIA
     Dosage: 150MG ONE TIME A DAY PO
     Route: 048
  3. BUDEPRION XL 150MG TEVA [Suspect]
     Indication: HEADACHE
     Dosage: 150MG ONE TIME A DAY PO
     Route: 048
  4. BUPROPION XL 150MG ACTAVIS [Suspect]

REACTIONS (6)
  - AGITATION [None]
  - ALOPECIA [None]
  - CONDITION AGGRAVATED [None]
  - FIBROMYALGIA [None]
  - HEADACHE [None]
  - PRODUCT SUBSTITUTION ISSUE [None]
